FAERS Safety Report 6284361-7 (Version None)
Quarter: 2009Q3

REPORT INFORMATION
  Report Type: 
  Country: None (occurrence: None)
  Receive Date: 20090714
  Receipt Date: 20090702
  Transmission Date: 20100115
  Serious: Yes (Other)
  Sender: FDA-Public Use
  Company Number: THYM-1001098

PATIENT
  Sex: Male

DRUGS (4)
  1. THYMOGLOBULIN [Suspect]
     Indication: RENAL TRANSPLANT
     Dosage: INTRAVENOUS
     Route: 042
     Dates: start: 20090301
  2. METHYLPREDNISOLONE [Suspect]
  3. STEROIDS [Concomitant]
  4. CYCLOSPORINE [Concomitant]

REACTIONS (9)
  - BLOOD PRESSURE INCREASED [None]
  - CHEST PAIN [None]
  - CONSTIPATION [None]
  - FOOD POISONING [None]
  - HEART RATE INCREASED [None]
  - PENILE OEDEMA [None]
  - SCROTAL OEDEMA [None]
  - TROPONIN INCREASED [None]
  - VOMITING [None]
